FAERS Safety Report 9546595 (Version 1)
Quarter: 2013Q3

REPORT INFORMATION
  Report Type: Spontaneous
  Country: CN (occurrence: CN)
  Receive Date: 20130924
  Receipt Date: 20130924
  Transmission Date: 20140515
  Serious: Yes (Hospitalization, Other)
  Sender: FDA-Public Use
  Company Number: CN-ELI_LILLY_AND_COMPANY-CN201309005316

PATIENT
  Age: 86 Year
  Sex: Female

DRUGS (4)
  1. ZYPREXA [Suspect]
     Dosage: 2.5 MG, QD
     Dates: start: 200708
  2. ALPRAZOLAM [Concomitant]
     Dosage: 0.4 MG, EACH EVENING
     Route: 048
     Dates: start: 200708
  3. MIRTAZAPINE [Interacting]
     Dosage: 7.5 MG, OTHER
  4. MIRTAZAPINE [Interacting]
     Dosage: 15 MG, OTHER

REACTIONS (4)
  - Neutropenia [Unknown]
  - Drug interaction [Unknown]
  - Red blood cell count decreased [Unknown]
  - Haemoglobin decreased [Unknown]
